FAERS Safety Report 11603697 (Version 2)
Quarter: 2015Q4

REPORT INFORMATION
  Report Type: Spontaneous
  Country: NL (occurrence: NL)
  Receive Date: 20151007
  Receipt Date: 20151020
  Transmission Date: 20160304
  Serious: Yes (Other)
  Sender: FDA-Public Use
  Company Number: NL-ROCHE-1642518

PATIENT
  Sex: Male

DRUGS (7)
  1. TOLBUTAMIDE. [Concomitant]
     Active Substance: TOLBUTAMIDE
  2. METFORMIN [Concomitant]
     Active Substance: METFORMIN HYDROCHLORIDE
     Route: 065
  3. SOTALOL. [Concomitant]
     Active Substance: SOTALOL
  4. AMLODIPINE [Concomitant]
     Active Substance: AMLODIPINE BESYLATE
  5. VEMURAFENIB [Suspect]
     Active Substance: VEMURAFENIB
     Indication: MALIGNANT MELANOMA
     Route: 065
     Dates: start: 20150728, end: 2015
  6. FUROSEMIDE. [Concomitant]
     Active Substance: FUROSEMIDE
  7. DABRAFENIB [Concomitant]
     Active Substance: DABRAFENIB

REACTIONS (1)
  - Renal impairment [Unknown]
